FAERS Safety Report 5859116-5 (Version None)
Quarter: 2008Q3

REPORT INFORMATION
  Report Type: 
  Country: None (occurrence: None)
  Receive Date: 20080827
  Receipt Date: 20080818
  Transmission Date: 20090109
  Serious: Yes (Hospitalization)
  Sender: FDA-Public Use
  Company Number: PHHY2008GB18638

PATIENT
  Age: 80 Year
  Sex: Male
  Weight: 63.4 kg

DRUGS (3)
  1. CARBAMAZEPINE [Interacting]
     Dosage: 400 MG, QD
  2. CAPECITABINE [Suspect]
     Indication: COLORECTAL CANCER METASTATIC
     Dosage: 100 MG/M2
     Route: 048
     Dates: start: 20071119, end: 20080710
  3. OXALIPLATIN [Suspect]
     Indication: COLORECTAL CANCER METASTATIC
     Dosage: 250 MG, QD
     Route: 042
     Dates: start: 20071119, end: 20080710

REACTIONS (3)
  - ANKLE FRACTURE [None]
  - DRUG INTERACTION [None]
  - EPILEPSY [None]
